FAERS Safety Report 23320165 (Version 2)
Quarter: 2023Q4

REPORT INFORMATION
  Report Type: Spontaneous
  Country: US (occurrence: US)
  Receive Date: 20231220
  Receipt Date: 20231220
  Transmission Date: 20240110
  Serious: Yes (Hospitalization, Other)
  Sender: FDA-Public Use
  Company Number: US-ALLERGAN-2045948US

PATIENT
  Sex: Female

DRUGS (5)
  1. BOTOX [Suspect]
     Active Substance: ONABOTULINUMTOXINA
     Indication: Product used for unknown indication
     Dosage: TIME INTERVAL: AS NECESSARY
     Route: 065
     Dates: start: 1997, end: 1997
  2. BOTOX [Suspect]
     Active Substance: ONABOTULINUMTOXINA
     Indication: Product used for unknown indication
     Dosage: TIME INTERVAL: AS NECESSARY
     Route: 065
     Dates: start: 202005, end: 202005
  3. BOTOX [Suspect]
     Active Substance: ONABOTULINUMTOXINA
     Indication: Product used for unknown indication
     Dosage: TIME INTERVAL: AS NECESSARY
     Route: 065
     Dates: start: 201907, end: 201907
  4. BOTOX [Suspect]
     Active Substance: ONABOTULINUMTOXINA
     Indication: Product used for unknown indication
     Dosage: TIME INTERVAL: AS NECESSARY
     Route: 065
     Dates: start: 2016, end: 2016
  5. XARELTO [Suspect]
     Active Substance: RIVAROXABAN
     Indication: Product used for unknown indication
     Route: 065

REACTIONS (21)
  - Skin disorder [Unknown]
  - Migraine [Unknown]
  - Musculoskeletal stiffness [Unknown]
  - Chest pain [Unknown]
  - Cardiovascular disorder [Unknown]
  - Drug interaction [Unknown]
  - Adverse drug reaction [Unknown]
  - Product label issue [Unknown]
  - Dyspnoea [Unknown]
  - Burning sensation [Unknown]
  - Gingival disorder [Unknown]
  - Pain in extremity [Unknown]
  - Pain of skin [Unknown]
  - Pharyngeal disorder [Unknown]
  - Intentional self-injury [Unknown]
  - Unevaluable event [Unknown]
  - Vasoconstriction [Unknown]
  - Fall [Unknown]
  - Headache [Unknown]
  - Alopecia [Unknown]
  - Lymphadenopathy [Unknown]

NARRATIVE: CASE EVENT DATE: 20180830
